FAERS Safety Report 15146100 (Version 1)
Quarter: 2018Q3

REPORT INFORMATION
  Report Type: Spontaneous
  Country: FR (occurrence: FR)
  Receive Date: 20180714
  Receipt Date: 20180714
  Transmission Date: 20181010
  Serious: Yes (Other)
  Sender: FDA-Public Use
  Company Number: FR-009507513-1807FRA004448

PATIENT
  Age: 27 Year
  Sex: Female

DRUGS (1)
  1. PUREGON (FOLLITROPIN BETA) [Suspect]
     Active Substance: FOLLITROPIN

REACTIONS (2)
  - Systemic lupus erythematosus [Unknown]
  - Arthritis [Unknown]
